FAERS Safety Report 5602369-9 (Version None)
Quarter: 2008Q1

REPORT INFORMATION
  Report Type: 
  Country: None (occurrence: None)
  Receive Date: 20080125
  Receipt Date: 20080115
  Transmission Date: 20080703
  Serious: Yes (Life-Threatening)
  Sender: FDA-Public Use
  Company Number: DE-TEVA-162119ISR

PATIENT
  Sex: Female

DRUGS (5)
  1. PACLITAXEL [Suspect]
     Indication: OVARIAN CANCER
     Route: 042
     Dates: start: 20070914, end: 20070914
  2. PACLITAXEL [Suspect]
     Indication: PERITONEAL CARCINOMA
     Route: 042
     Dates: start: 20070916, end: 20070916
  3. DEXAMETHASONE TAB [Concomitant]
  4. DIPHENHYDRAMINE HCL [Concomitant]
  5. H2-RECEPTOR ANTAGONISTS [Concomitant]

REACTIONS (6)
  - BLOOD PRESSURE INCREASED [None]
  - DYSPNOEA [None]
  - SPEECH DISORDER [None]
  - TACHYCARDIA [None]
  - TRANSIENT ISCHAEMIC ATTACK [None]
  - VOMITING [None]
